FAERS Safety Report 6311940-0 (Version None)
Quarter: 2009Q3

REPORT INFORMATION
  Report Type: 
  Country: None (occurrence: None)
  Receive Date: 20090817
  Receipt Date: 20080702
  Transmission Date: 20100115
  Serious: Yes (Other)
  Sender: FDA-Public Use
  Company Number: US-BRISTOL-MYERS SQUIBB COMPANY-14254213

PATIENT
  Sex: Female

DRUGS (5)
  1. ESTRACE [Suspect]
     Indication: HORMONE THERAPY
     Dosage: 30-NOV-1995
     Dates: start: 19950703
  2. ESTRATEST [Suspect]
     Indication: HORMONE THERAPY
     Dosage: 17-SEP-1996
     Dates: start: 19950222
  3. PROVERA [Suspect]
     Indication: HORMONE THERAPY
     Dosage: 18-AUG-1995
     Dates: start: 19950222
  4. PREMPRO [Suspect]
     Indication: HORMONE THERAPY
     Dates: start: 19961211, end: 20010102
  5. PREMARIN [Suspect]
     Indication: HORMONE THERAPY
     Dates: start: 19950818

REACTIONS (1)
  - BREAST CANCER [None]
